FAERS Safety Report 7034994-5 (Version None)
Quarter: 2010Q4

REPORT INFORMATION
  Report Type: 
  Country: None (occurrence: None)
  Receive Date: 20101008
  Receipt Date: 20100929
  Transmission Date: 20110411
  Serious: Yes (Other)
  Sender: FDA-Public Use
  Company Number: US-BAYER-201035927NA

PATIENT
  Age: 35 Year
  Sex: Female

DRUGS (2)
  1. YASMIN [Suspect]
     Indication: PRODUCT USED FOR UNKNOWN INDICATION
     Route: 048
     Dates: start: 20040801, end: 20040101
  2. YASMIN [Suspect]
     Route: 048
     Dates: start: 20041101, end: 20050601

REACTIONS (1)
  - PULMONARY EMBOLISM [None]
